FAERS Safety Report 9928159 (Version 1)
Quarter: 2014Q1

REPORT INFORMATION
  Report Type: Spontaneous
  Country: US (occurrence: None)
  Receive Date: 20140226
  Receipt Date: 20140226
  Transmission Date: 20141002
  Serious: Yes (Other)
  Sender: FDA-Public Use
  Company Number: None

PATIENT
  Age: 42 Year
  Sex: Female
  Weight: 72.58 kg

DRUGS (1)
  1. VIIBRYD [Suspect]
     Indication: MAJOR DEPRESSION
     Route: 048
     Dates: start: 20130701, end: 20140225

REACTIONS (9)
  - Weight increased [None]
  - Malaise [None]
  - Drug ineffective [None]
  - Pruritus [None]
  - Headache [None]
  - Feeling abnormal [None]
  - Paraesthesia [None]
  - Bruxism [None]
  - Drug withdrawal syndrome [None]
